FAERS Safety Report 5999921-8 (Version None)
Quarter: 2008Q4

REPORT INFORMATION
  Report Type: 
  Country: None (occurrence: None)
  Receive Date: 20081215
  Receipt Date: 20081205
  Transmission Date: 20090506
  Serious: Yes (Other)
  Sender: FDA-Public Use
  Company Number: PHHY2008IT31043

PATIENT
  Age: 80 Year
  Sex: Female

DRUGS (3)
  1. EXELON [Suspect]
     Dosage: 4.6 MG/24 HOUR PATCH
     Route: 062
     Dates: start: 20081105
  2. WARFARIN SODIUM [Concomitant]
  3. TENORMIN [Concomitant]

REACTIONS (2)
  - CONFUSIONAL STATE [None]
  - HAEMATOMA [None]
